FAERS Safety Report 10611284 (Version 2)
Quarter: 2014Q4

REPORT INFORMATION
  Report Type: Report from Study
  Country: BR (occurrence: BR)
  Receive Date: 20141126
  Receipt Date: 20141126
  Transmission Date: 20150529
  Serious: Yes (Other)
  Sender: FDA-Public Use
  Company Number: PHHY2013BR138604

PATIENT
  Sex: Female
  Weight: 91 kg

DRUGS (1)
  1. FORASEQ [Suspect]
     Active Substance: BUDESONIDE\FORMOTEROL FUMARATE
     Indication: DYSPNOEA
     Dosage: UNK UKN, Q12H
     Route: 055
     Dates: start: 20131007

REACTIONS (5)
  - Dyspnoea [Recovering/Resolving]
  - Maternal exposure during pregnancy [Unknown]
  - Overweight [Recovering/Resolving]
  - Drug ineffective [Unknown]
  - Fatigue [Recovering/Resolving]
